FAERS Safety Report 9369940 (Version 1)
Quarter: 2013Q2

REPORT INFORMATION
  Report Type: Spontaneous
  Country: US (occurrence: US)
  Receive Date: 20130626
  Receipt Date: 20130626
  Transmission Date: 20140414
  Serious: No
  Sender: FDA-Public Use
  Company Number: US-BAYER-2013-078109

PATIENT
  Sex: Female
  Weight: 73 kg

DRUGS (4)
  1. BETASERON [Suspect]
     Dosage: 0.25 MG, QOD
     Route: 058
  2. SYNTHROID [Concomitant]
  3. VITAMIN D [Concomitant]
  4. MSM [Concomitant]

REACTIONS (2)
  - Dizziness [Unknown]
  - Myalgia [Unknown]
